FAERS Safety Report 4832356-X (Version None)
Quarter: 2005Q4

REPORT INFORMATION
  Report Type: 
  Country: None (occurrence: None)
  Receive Date: 20051121
  Receipt Date: 20051108
  Transmission Date: 20060501
  Serious: Yes (Other)
  Sender: FDA-Public Use
  Company Number: FR-SOLVAY-00205003777

PATIENT
  Age: 38 Year
  Sex: Female

DRUGS (2)
  1. DILTIAZEM HYDROCHLORIDE [Concomitant]
     Indication: ILL-DEFINED DISORDER
     Dosage: DAILY DOSE:  UNKNOWN
     Route: 065
     Dates: start: 20050512, end: 20050927
  2. COVERSYL [Suspect]
     Indication: HYPERTENSION
     Dosage: DAILY DOSE: 1 DOSAGE FORM
     Route: 048
     Dates: start: 20050101, end: 20050927

REACTIONS (1)
  - GESTATIONAL DIABETES [None]
